FAERS Safety Report 5032159-X (Version None)
Quarter: 2006Q2

REPORT INFORMATION
  Report Type: 
  Country: None (occurrence: None)
  Receive Date: 20060619
  Receipt Date: 20060602
  Transmission Date: 20061013
  Serious: Yes (Hospitalization)
  Sender: FDA-Public Use
  Company Number: 29326

PATIENT
  Age: 65 Year
  Sex: Female

DRUGS (3)
  1. IMIQUIMOD(IMIQUIMOD) [Suspect]
     Indication: PAGET'S DISEASE OF THE VULVA
     Dosage: 1 3 IN 1 WEEKS
     Route: 061
  2. FENTANYL TRANSDERMAL SYSTEM [Suspect]
     Indication: PAIN
     Dosage: 1 DOSAGE FORM
     Route: 062
  3. LIDOCAINE [Concomitant]

REACTIONS (7)
  - ABDOMINAL PAIN [None]
  - APPLICATION SITE INFLAMMATION [None]
  - APPLICATION SITE IRRITATION [None]
  - CONSTIPATION [None]
  - DISCOMFORT [None]
  - MICTURITION DISORDER [None]
  - NAUSEA [None]
